FAERS Safety Report 5016488-1 (Version None)
Quarter: 2006Q2

REPORT INFORMATION
  Report Type: 
  Country: None (occurrence: None)
  Receive Date: 20060602
  Receipt Date: 20060519
  Transmission Date: 20061013
  Serious: Yes (Other)
  Sender: FDA-Public Use
  Company Number: PHNU2006DE02046

PATIENT
  Sex: Male

DRUGS (2)
  1. CLOZAPINE [Suspect]
     Route: 048
  2. CIPROBAY [Suspect]
     Indication: URINARY TRACT INFECTION

REACTIONS (5)
  - DIFFICULTY IN WALKING [None]
  - DRUG INTERACTION [None]
  - DRUG LEVEL INCREASED [None]
  - PETIT MAL EPILEPSY [None]
  - URINARY TRACT INFECTION [None]
